FAERS Safety Report 11072850 (Version 2)
Quarter: 2017Q4

REPORT INFORMATION
  Report Type: Spontaneous
  Country: US (occurrence: US)
  Receive Date: 20150428
  Receipt Date: 20171109
  Transmission Date: 20180320
  Serious: Yes (Other)
  Sender: FDA-Public Use
  Company Number: US-PFIZER INC-2015144394

PATIENT
  Age: 44 Year
  Sex: Female
  Weight: 122 kg

DRUGS (2)
  1. CELEBREX [Suspect]
     Active Substance: CELECOXIB
     Indication: BACK PAIN
     Dosage: 1 DF, 2X/DAY
     Route: 048
  2. CELEBREX [Suspect]
     Active Substance: CELECOXIB
     Indication: PAIN

REACTIONS (7)
  - Pruritus [Not Recovered/Not Resolved]
  - Eye swelling [Recovering/Resolving]
  - Paraesthesia [Not Recovered/Not Resolved]
  - Anaphylactic shock [Recovering/Resolving]
  - Throat tightness [Recovering/Resolving]
  - Burning sensation [Recovering/Resolving]
  - Expired product administered [Unknown]

NARRATIVE: CASE EVENT DATE: 20150417
